FAERS Safety Report 18563585 (Version 1)
Quarter: 2020Q4

REPORT INFORMATION
  Report Type: Spontaneous
  Country: US (occurrence: US)
  Receive Date: 20201005
  Receipt Date: 20201005
  Transmission Date: 20210114
  Serious: Yes (Death)
  Sender: FDA-Public Use
  Company Number: None

PATIENT
  Age: 6 Decade
  Sex: Male

DRUGS (9)
  1. IMMUNOGLOBULINS, INTRAVENOUS [Suspect]
     Active Substance: HUMAN IMMUNOGLOBULIN G
  2. LOPINAVIR-RITONAVIR [Suspect]
     Active Substance: LOPINAVIR\RITONAVIR
  3. UMIFENOVIR. [Suspect]
     Active Substance: UMIFENOVIR
  4. INTERFERON ALFA NOS [Concomitant]
     Active Substance: INTERFERON ALFA-2A OR INTERFERON ALFA-2B
  5. LOPINAVIR-RITONAVIR [Concomitant]
     Active Substance: LOPINAVIR\RITONAVIR
  6. UMIFENOVIR. [Concomitant]
     Active Substance: UMIFENOVIR
  7. METHYLPREDNISOLONE. [Suspect]
     Active Substance: METHYLPREDNISOLONE
  8. INTERFERON ALFA NOS [Suspect]
     Active Substance: INTERFERON ALFA-2A OR INTERFERON ALFA-2B
  9. IMMUNOGLOBULINS, TRAVAENOUS [Concomitant]
     Indication: COVID-19
     Dates: start: 2020

REACTIONS (10)
  - Off label use [None]
  - Bronchoalveolar lavage [None]
  - Biliary tract disorder [None]
  - Pseudomonas infection [None]
  - Purulent discharge [None]
  - Culture positive [None]
  - Multiple organ dysfunction syndrome [None]
  - Blood culture positive [None]
  - Candida infection [None]
  - Respiratory failure [None]
